FAERS Safety Report 18607334 (Version 40)
Quarter: 2025Q1

REPORT INFORMATION
  Report Type: Report from Study
  Country: US (occurrence: US)
  Receive Date: 20201211
  Receipt Date: 20250327
  Transmission Date: 20250409
  Serious: Yes (Other)
  Sender: TAKEDA
  Company Number: US-SHIRE-US202019069

PATIENT
  Age: 69 Year
  Sex: Female
  Weight: 57 kg

DRUGS (35)
  1. HUMAN IMMUNOGLOBULIN G [Suspect]
     Active Substance: HUMAN IMMUNOGLOBULIN G
     Indication: Primary immunodeficiency syndrome
     Dosage: 3 GRAM, QOD
     Dates: start: 20170829
  2. HUMAN IMMUNOGLOBULIN G [Suspect]
     Active Substance: HUMAN IMMUNOGLOBULIN G
     Indication: Selective IgG subclass deficiency
     Dosage: 3 GRAM, QOD
     Dates: start: 20170830
  3. HUMAN IMMUNOGLOBULIN G [Suspect]
     Active Substance: HUMAN IMMUNOGLOBULIN G
     Indication: Hypergammaglobulinaemia
     Dosage: 3 GRAM, QOD
  4. HUMAN IMMUNOGLOBULIN G [Suspect]
     Active Substance: HUMAN IMMUNOGLOBULIN G
     Indication: Immune system disorder
  5. HYQVIA [Suspect]
     Active Substance: HUMAN IMMUNOGLOBULIN G\HYALURONIDASE (HUMAN RECOMBINANT)
     Indication: Product used for unknown indication
  6. MODERNA COVID-19 VACCINE [Suspect]
     Active Substance: ELASOMERAN
     Indication: COVID-19 immunisation
  7. ZETIA [Suspect]
     Active Substance: EZETIMIBE
     Indication: Product used for unknown indication
  8. ACYCLOVIR [Concomitant]
     Active Substance: ACYCLOVIR
  9. VITAMIN B COMPLEX [Concomitant]
     Active Substance: CYANOCOBALAMIN\DEXPANTHENOL\NIACINAMIDE\PYRIDOXINE HYDROCHLORIDE\RIBOFLAVIN 5^-PHOSPHATE SODIUM\THIA
  10. MAGNESIUM [Concomitant]
     Active Substance: MAGNESIUM
  11. EPINEPHRINE [Concomitant]
     Active Substance: EPINEPHRINE
  12. BUTALBITAL, ASPIRIN, AND CAFFEINE [Concomitant]
     Active Substance: ASPIRIN\BUTALBITAL\CAFFEINE
  13. FISH OIL\OMEGA-3 FATTY ACIDS [Concomitant]
     Active Substance: FISH OIL\OMEGA-3 FATTY ACIDS
  14. FLUTICASONE PROPIONATE [Concomitant]
     Active Substance: FLUTICASONE PROPIONATE
  15. RIZATRIPTAN [Concomitant]
     Active Substance: RIZATRIPTAN
  16. CALCIUM [Concomitant]
     Active Substance: CALCIUM
  17. PREDNISONE [Concomitant]
     Active Substance: PREDNISONE
  18. FOLIC ACID [Concomitant]
     Active Substance: FOLIC ACID
  19. CALCIUM\MAGNESIUM [Concomitant]
     Active Substance: CALCIUM\MAGNESIUM
  20. PROMETHAZINE HYDROCHLORIDE [Concomitant]
     Active Substance: PROMETHAZINE HYDROCHLORIDE
  21. LIDOCAINE [Concomitant]
     Active Substance: LIDOCAINE
  22. DIAZEPAM [Concomitant]
     Active Substance: DIAZEPAM
  23. VITAMIN D3 [Concomitant]
     Active Substance: CHOLECALCIFEROL
  24. CEFUROXIME [Concomitant]
     Active Substance: CEFUROXIME
  25. BUTALBITAL [Concomitant]
     Active Substance: BUTALBITAL
  26. ACETAMINOPHEN\BUTALBITAL\CAFFEINE\CODEINE PHOSPHATE [Concomitant]
     Active Substance: ACETAMINOPHEN\BUTALBITAL\CAFFEINE\CODEINE PHOSPHATE
  27. LIDOCAINE HYDROCHLORIDE [Concomitant]
     Active Substance: LIDOCAINE HYDROCHLORIDE
  28. FLUTICASONE [Concomitant]
     Active Substance: FLUTICASONE
  29. PROMETHAZINE [Concomitant]
     Active Substance: PROMETHAZINE HYDROCHLORIDE
  30. VITAMIN D [Concomitant]
     Active Substance: VITAMIN D NOS
  31. VITAMIN C [Concomitant]
     Active Substance: ASCORBIC ACID
  32. EPIPEN [Concomitant]
     Active Substance: EPINEPHRINE
  33. DIPHENHYDRAMINE [Concomitant]
     Active Substance: DIPHENHYDRAMINE
  34. AMOXICILLIN [Concomitant]
     Active Substance: AMOXICILLIN
  35. PEPCID [Concomitant]
     Active Substance: FAMOTIDINE

REACTIONS (66)
  - Systemic lupus erythematosus [Recovering/Resolving]
  - Antiphospholipid syndrome [Unknown]
  - Behcet^s syndrome [Unknown]
  - Pancreatitis [Unknown]
  - Sjogren^s syndrome [Unknown]
  - Cardiac septal defect [Unknown]
  - Fear of disease [Unknown]
  - Oral pain [Unknown]
  - Rhinalgia [Unknown]
  - White blood cell count increased [Unknown]
  - Incorrect dose administered [Unknown]
  - Coagulopathy [Unknown]
  - Eye infection [Unknown]
  - Thinking abnormal [Unknown]
  - Memory impairment [Unknown]
  - Gastrooesophageal reflux disease [Unknown]
  - Emphysema [Unknown]
  - Pulmonary granuloma [Unknown]
  - Fungal infection [Unknown]
  - Arthropod sting [Unknown]
  - Tooth infection [Unknown]
  - Tooth fracture [Unknown]
  - Pain in jaw [Unknown]
  - Oral mucosal blistering [Unknown]
  - Vasculitis [Unknown]
  - Rubber sensitivity [Unknown]
  - Illness [Unknown]
  - Brain fog [Unknown]
  - Allergy to immunoglobulin therapy [Unknown]
  - Skin disorder [Unknown]
  - Skin burning sensation [Unknown]
  - Blood calcium increased [Unknown]
  - Abdominal hernia [Unknown]
  - Viral upper respiratory tract infection [Unknown]
  - Hernia [Unknown]
  - Osteoporosis [Unknown]
  - Obstruction [Unknown]
  - Cardiac murmur [Unknown]
  - Hyperparathyroidism [Unknown]
  - Exposure to SARS-CoV-2 [Recovering/Resolving]
  - Lung disorder [Unknown]
  - Helicobacter infection [Unknown]
  - Escherichia infection [Unknown]
  - Eye irritation [Unknown]
  - Urinary tract infection [Unknown]
  - Smoke sensitivity [Unknown]
  - Upper respiratory tract infection [Unknown]
  - Sinusitis [Unknown]
  - Blood cholesterol increased [Unknown]
  - Stomatitis [Unknown]
  - White blood cell count decreased [Unknown]
  - Amnesia [Unknown]
  - Infusion site haemorrhage [Unknown]
  - Palpitations [Unknown]
  - Asthenia [Unknown]
  - Chest pain [Unknown]
  - Malaise [Unknown]
  - Erythema [Unknown]
  - Migraine [Not Recovered/Not Resolved]
  - Arthralgia [Unknown]
  - Dyspnoea [Unknown]
  - Fatigue [Unknown]
  - Headache [Unknown]
  - Myalgia [Unknown]
  - Dizziness [Unknown]
  - Anxiety [Unknown]

NARRATIVE: CASE EVENT DATE: 20210320
